FAERS Safety Report 20080956 (Version 1)
Quarter: 2021Q4

REPORT INFORMATION
  Report Type: Report from Study
  Country: US (occurrence: None)
  Receive Date: 20211117
  Receipt Date: 20211117
  Transmission Date: 20220303
  Serious: Yes (Other)
  Sender: FDA-Public Use
  Company Number: 2021A802538

PATIENT
  Age: 705 Month
  Sex: Female
  Weight: 60.6 kg

DRUGS (4)
  1. RADIATION THERAPY [Suspect]
     Active Substance: RADIATION THERAPY
     Indication: Non-small cell lung cancer
     Dosage: 44 GY IN TOTAL, 30 FRACTIONS
     Route: 065
     Dates: end: 20211001
  2. DURVALUMAB [Suspect]
     Active Substance: DURVALUMAB
     Indication: Non-small cell lung cancer
     Route: 042
     Dates: start: 20210830
  3. CARBOPLATIN [Suspect]
     Active Substance: CARBOPLATIN
     Indication: Non-small cell lung cancer
     Route: 065
     Dates: start: 20210830
  4. PACLITAXEL [Suspect]
     Active Substance: PACLITAXEL
     Indication: Non-small cell lung cancer
     Route: 065
     Dates: start: 20210830

REACTIONS (3)
  - Lymphocyte count decreased [Recovering/Resolving]
  - Platelet count decreased [Recovering/Resolving]
  - White blood cell count decreased [Recovering/Resolving]

NARRATIVE: CASE EVENT DATE: 20211004
